FAERS Safety Report 7519953-8 (Version None)
Quarter: 2011Q2

REPORT INFORMATION
  Report Type: 
  Country: None (occurrence: None)
  Receive Date: 20110602
  Receipt Date: 20110523
  Transmission Date: 20111010
  Serious: Yes (Hospitalization)
  Sender: FDA-Public Use
  Company Number: CZ-BAXTER-2011BH011478

PATIENT
  Age: 15 Year
  Sex: Female
  Weight: 57 kg

DRUGS (11)
  1. RITUXIMAB [Suspect]
     Indication: PRODUCT USED FOR UNKNOWN INDICATION
     Route: 065
     Dates: start: 20091104, end: 20091106
  2. CARBOPLATIN [Suspect]
     Indication: PRODUCT USED FOR UNKNOWN INDICATION
     Route: 065
     Dates: start: 20091106, end: 20091107
  3. VIGANTOL ^MERCK^ [Concomitant]
     Indication: PRODUCT USED FOR UNKNOWN INDICATION
     Route: 048
     Dates: start: 20080901
  4. VITACALCIN [Concomitant]
     Indication: OSTEOPOROSIS PROPHYLAXIS
     Route: 048
     Dates: start: 20080901
  5. IFOSFAMIDE [Suspect]
     Indication: PRODUCT USED FOR UNKNOWN INDICATION
     Route: 065
     Dates: start: 20091106, end: 20091108
  6. ETOPOSIDE [Suspect]
     Indication: PRODUCT USED FOR UNKNOWN INDICATION
     Route: 065
     Dates: start: 20091106, end: 20091108
  7. VORICONAZOLE [Suspect]
     Indication: ASPERGILLOSIS
     Route: 042
     Dates: start: 20091027, end: 20091030
  8. VORICONAZOLE [Suspect]
     Route: 042
     Dates: start: 20091026, end: 20091026
  9. POTASSIUM CHLORIDE [Concomitant]
     Indication: HYPOKALAEMIA
     Route: 048
     Dates: start: 20080901
  10. AMPHOTERICIN B [Concomitant]
     Indication: MUCOSAL INFLAMMATION
     Route: 048
     Dates: start: 20091118
  11. CODEINE SULFATE [Concomitant]
     Indication: COUGH
     Route: 048
     Dates: start: 20091026

REACTIONS (1)
  - EPISTAXIS [None]
